FAERS Safety Report 10154953 (Version 1)
Quarter: 2014Q2

REPORT INFORMATION
  Report Type: Spontaneous
  Country: US (occurrence: US)
  Receive Date: 20140506
  Receipt Date: 20140506
  Transmission Date: 20141212
  Serious: No
  Sender: FDA-Public Use
  Company Number: US-BAYER-2014-065354

PATIENT
  Age: 80 Year
  Sex: Female
  Weight: 74.83 kg

DRUGS (11)
  1. ALEVE GELCAPS [Suspect]
     Indication: ARTHRITIS
     Dosage: 1 DF, QD WITH FOOD
  2. NORVASC [Concomitant]
     Dosage: UNK
  3. DIOVAN [Concomitant]
     Dosage: UNK
  4. LIPITOR [Concomitant]
  5. PRILOSEC [Concomitant]
     Dosage: UNK
  6. BIOTIN [Concomitant]
     Dosage: UNK
  7. ACIDOPHILUS [Concomitant]
  8. OMEGA 3 [Concomitant]
     Dosage: UNK
  9. MELATONIN [Concomitant]
     Dosage: UNK
  10. BAYER ASPIRIN REGIMEN ADULT LOW STRENGTH [Concomitant]
     Dosage: UNK
  11. ONE A DAY WOMEN^S 50+ ADVANTAGE [Concomitant]
     Dosage: UNK

REACTIONS (2)
  - Wrong technique in drug usage process [None]
  - Off label use [None]
